FAERS Safety Report 23814941 (Version 3)
Quarter: 2025Q1

REPORT INFORMATION
  Report Type: Spontaneous
  Country: US (occurrence: US)
  Receive Date: 20240503
  Receipt Date: 20250120
  Transmission Date: 20250409
  Serious: No
  Sender: OCULAR
  Company Number: US-OCULAR THERAPEUTIX-2024OCX00066

PATIENT

DRUGS (1)
  1. DEXTENZA [Suspect]
     Active Substance: DEXAMETHASONE

REACTIONS (2)
  - Eczema eyelids [Unknown]
  - Dermatitis [Unknown]
